FAERS Safety Report 9663942 (Version 3)
Quarter: 2013Q4

REPORT INFORMATION
  Report Type: Spontaneous
  Country: US (occurrence: US)
  Receive Date: 20131101
  Receipt Date: 20131129
  Transmission Date: 20140711
  Serious: Yes (Hospitalization, Other)
  Sender: FDA-Public Use
  Company Number: CHPA2013US016398

PATIENT
  Age: 70 Year
  Sex: Female

DRUGS (9)
  1. VOLTAREN GEL [Suspect]
     Indication: ARTHRITIS
     Dosage: 1 INCH, 1 TIME AS NEEDED
     Route: 061
     Dates: start: 2012
  2. VOLTAREN GEL [Suspect]
     Indication: MUSCLE SPASMS
  3. VOLTAREN GEL [Suspect]
     Indication: OFF LABEL USE
  4. TRAMADOL [Concomitant]
     Dosage: UNK, UNK
     Route: 048
  5. LEVOCETIRIZINE [Concomitant]
     Indication: SINUS HEADACHE
     Dosage: UNK, UNK
     Route: 048
  6. LEVOCETIRIZINE [Concomitant]
     Indication: HYPERSENSITIVITY
  7. MYOFLEX [Concomitant]
     Indication: ARTHRITIS
     Dosage: UNK, PRN
     Route: 061
     Dates: start: 1983
  8. MYOFLEX [Concomitant]
     Indication: PAIN
  9. ANTIHYPERTENSIVE DRUGS [Concomitant]
     Dosage: UNK, UNK

REACTIONS (8)
  - Haematemesis [Recovered/Resolved]
  - Diarrhoea haemorrhagic [Recovered/Resolved]
  - Ulcer haemorrhage [Recovered/Resolved]
  - Arthralgia [Recovering/Resolving]
  - Therapeutic response unexpected [Unknown]
  - Underdose [Unknown]
  - Drug administered at inappropriate site [Unknown]
  - Wrong technique in drug usage process [Unknown]
